FAERS Safety Report 10721062 (Version 4)
Quarter: 2015Q2

REPORT INFORMATION
  Report Type: Spontaneous
  Country: US (occurrence: US)
  Receive Date: 20150119
  Receipt Date: 20150527
  Transmission Date: 20150821
  Serious: Yes (Hospitalization, Congenital Anomaly, Other)
  Sender: FDA-Public Use
  Company Number: US-APOTEX-2015AP005216

PATIENT
  Age: 0 Day
  Sex: Male

DRUGS (2)
  1. PRENATAL VITAMINS                  /07426201/ [Concomitant]
     Active Substance: ASCORBIC ACID\BIOTIN\MINERALS\NIACIN\RETINOL\TOCOPHEROL\VITAMIN B\VITAMIN D
     Indication: PRODUCT USED FOR UNKNOWN INDICATION
     Dosage: UNK
     Route: 064
  2. PAXIL [Suspect]
     Active Substance: PAROXETINE HYDROCHLORIDE
     Indication: DEPRESSION
     Dosage: UNK UNK, QD
     Route: 064
     Dates: start: 2004, end: 2006

REACTIONS (9)
  - Tricuspid valve incompetence [Unknown]
  - Atrial septal defect [Unknown]
  - Patent ductus arteriosus [Unknown]
  - Mitral valve incompetence [Unknown]
  - Left ventricular dysfunction [Unknown]
  - Foetal exposure during pregnancy [Unknown]
  - Coarctation of the aorta [Unknown]
  - Heart disease congenital [Unknown]
  - Femoral artery occlusion [Unknown]

NARRATIVE: CASE EVENT DATE: 20050421
